FAERS Safety Report 6303422-7 (Version None)
Quarter: 2009Q3

REPORT INFORMATION
  Report Type: 
  Country: None (occurrence: None)
  Receive Date: 20090810
  Receipt Date: 20090729
  Transmission Date: 20100115
  Serious: Yes (Hospitalization)
  Sender: FDA-Public Use
  Company Number: FR-PFIZER INC-2009247055

PATIENT
  Age: 71 Year

DRUGS (6)
  1. TRIFLUCAN [Suspect]
     Indication: ORAL FUNGAL INFECTION
     Dosage: 100 MG, 2X/DAY
     Route: 048
     Dates: start: 20090708, end: 20090710
  2. AMAREL [Suspect]
     Dosage: 4 MG, 1X/DAY
     Route: 048
     Dates: start: 20060101, end: 20090710
  3. CRESTOR [Concomitant]
     Dosage: UNK
     Dates: start: 20070101
  4. KARDEGIC [Concomitant]
  5. COKENZEN [Concomitant]
  6. SPIRIVA [Concomitant]

REACTIONS (2)
  - AGITATION [None]
  - HYPOGLYCAEMIA [None]
